FAERS Safety Report 25823186 (Version 2)
Quarter: 2025Q4

REPORT INFORMATION
  Report Type: Spontaneous
  Country: US (occurrence: US)
  Receive Date: 20250919
  Receipt Date: 20251219
  Transmission Date: 20260118
  Serious: No
  Sender: MERCK SHARP & DOHME LLC
  Company Number: US-009507513-2324404

PATIENT
  Sex: Male
  Weight: 107.5 kg

DRUGS (24)
  1. SOTATERCEPT-CSRK [Suspect]
     Active Substance: SOTATERCEPT-CSRK
     Indication: Product used for unknown indication
     Dates: end: 2025
  2. SOTATERCEPT-CSRK [Suspect]
     Active Substance: SOTATERCEPT-CSRK
  3. SOTATERCEPT-CSRK [Suspect]
     Active Substance: SOTATERCEPT-CSRK
  4. SOTATERCEPT-CSRK [Suspect]
     Active Substance: SOTATERCEPT-CSRK
  5. TREPROSTINIL SODIUM [Suspect]
     Active Substance: TREPROSTINIL SODIUM
     Indication: Pulmonary arterial hypertension
     Dosage: 0.098 UG/KG. STRENGTH: 5 MG/ML.
     Route: 041
     Dates: start: 20241218
  6. XANAX [Concomitant]
     Active Substance: ALPRAZOLAM
  7. ACETAMINOPHEN\HYDROCODONE [Concomitant]
     Active Substance: ACETAMINOPHEN\HYDROCODONE
  8. POTASSIUM CHLORIDE [Concomitant]
     Active Substance: POTASSIUM CHLORIDE
  9. TESTOSTERONE CYPIONATE [Concomitant]
     Active Substance: TESTOSTERONE CYPIONATE
  10. TYLENOL EXTRA STRENGTH [Concomitant]
     Active Substance: ACETAMINOPHEN
  11. SODIUM CHLORIDE [Concomitant]
     Active Substance: SODIUM CHLORIDE
  12. METAMUCIL [Concomitant]
     Active Substance: PLANTAGO SEED
  13. SERTRALINE HYDROCHLORIDE [Concomitant]
     Active Substance: SERTRALINE HYDROCHLORIDE
  14. MAGNESIUM [Concomitant]
     Active Substance: MAGNESIUM
  15. OMEPRAZOLE [Concomitant]
     Active Substance: OMEPRAZOLE
  16. ADCIRCA [Concomitant]
     Active Substance: TADALAFIL
  17. ASPIRIN [Concomitant]
     Active Substance: ASPIRIN
  18. SPIRONOLACTONE [Concomitant]
     Active Substance: SPIRONOLACTONE
  19. OXYGEN [Concomitant]
     Active Substance: OXYGEN
  20. IBUPROFEN [Concomitant]
     Active Substance: IBUPROFEN
  21. ROSUVASTATIN CALCIUM [Concomitant]
     Active Substance: ROSUVASTATIN CALCIUM
  22. AMBRISENTAN [Concomitant]
     Active Substance: AMBRISENTAN
  23. TORSEMIDE [Concomitant]
     Active Substance: TORSEMIDE
  24. METHOCARBAMOL [Concomitant]
     Active Substance: METHOCARBAMOL

REACTIONS (1)
  - Platelet count decreased [Unknown]
